FAERS Safety Report 15572969 (Version 1)
Quarter: 2018Q4

REPORT INFORMATION
  Report Type: Spontaneous
  Country: US (occurrence: US)
  Receive Date: 20181031
  Receipt Date: 20181031
  Transmission Date: 20190205
  Serious: No
  Sender: FDA-Public Use
  Company Number: US-SA-2018SA297540

PATIENT
  Age: 87 Year
  Sex: Female

DRUGS (3)
  1. CLARITIN ALLERGIC [Concomitant]
  2. ALLEGRA ALLERGY [Suspect]
     Active Substance: FEXOFENADINE HYDROCHLORIDE
     Indication: PRURITUS
  3. ALLEGRA ALLERGY [Suspect]
     Active Substance: FEXOFENADINE HYDROCHLORIDE
     Indication: RASH
     Dosage: 180 MG IN MORNING AND 60MG AT NIGHT

REACTIONS (3)
  - Head discomfort [Unknown]
  - Dizziness [Unknown]
  - Constipation [Unknown]
